FAERS Safety Report 22598445 (Version 1)
Quarter: 2023Q2

REPORT INFORMATION
  Report Type: Spontaneous
  Country: DE (occurrence: DE)
  Receive Date: 20230614
  Receipt Date: 20230614
  Transmission Date: 20230721
  Serious: Yes (Other)
  Sender: FDA-Public Use
  Company Number: None

PATIENT
  Sex: Male

DRUGS (1)
  1. OMEPRAZOLE [Suspect]
     Active Substance: OMEPRAZOLE
     Indication: Product used for unknown indication
     Dosage: DURATION : 120DAYS
     Dates: start: 2023, end: 202305

REACTIONS (5)
  - Swollen tongue [Unknown]
  - Hypersensitivity [Unknown]
  - Rash [Unknown]
  - Myalgia [Not Recovered/Not Resolved]
  - Oral mucosal blistering [Unknown]

NARRATIVE: CASE EVENT DATE: 20230101
